FAERS Safety Report 10235036 (Version 1)
Quarter: 2014Q2

REPORT INFORMATION
  Report Type: Report from Study
  Country: US (occurrence: None)
  Receive Date: 20140611
  Receipt Date: 20140611
  Transmission Date: 20141212
  Serious: Yes (Hospitalization)
  Sender: FDA-Public Use
  Company Number: 2014STPI000183

PATIENT
  Age: 17 Year
  Sex: Male

DRUGS (15)
  1. ONCASPAR [Suspect]
     Indication: ACUTE LYMPHOCYTIC LEUKAEMIA
     Route: 042
     Dates: start: 20140428, end: 20140428
  2. METHYLPREDNISOLONE [Suspect]
     Indication: ACUTE LYMPHOCYTIC LEUKAEMIA
     Route: 042
     Dates: start: 20140418, end: 20140505
  3. VINCRISTINE SULFATE [Suspect]
     Indication: ACUTE LYMPHOCYTIC LEUKAEMIA
     Dates: start: 20140425, end: 20140502
  4. DOXORUBICIN HYDROCHLORIDE [Suspect]
     Indication: ACUTE LYMPHOCYTIC LEUKAEMIA
     Route: 042
     Dates: start: 20140425, end: 20140426
  5. DEXRAZOXANE [Suspect]
     Indication: ACUTE LYMPHOCYTIC LEUKAEMIA
     Route: 042
     Dates: start: 20140425, end: 20140426
  6. METHOTREXATE SODIUM [Suspect]
     Indication: ACUTE LYMPHOCYTIC LEUKAEMIA
     Route: 042
     Dates: start: 20140427, end: 20140427
  7. CALCIUM CARBONATE (CALCIUM CARBONATE) [Concomitant]
  8. LOVERSOL (LOVERSOL) [Concomitant]
  9. LORAZEPAM (LORAZEPAM) [Concomitant]
  10. MEROPENEM (MEROPENEM TRIHYDRATE) [Concomitant]
  11. ONDANSETRON (ONDANSETRON HYDROCHLORIDE) [Concomitant]
  12. MIRALAX (MACROGOL 3350) [Concomitant]
  13. POTASSIUM PHOSPHATES (POTASSIUM PHOSPHATE MONOBASIC) [Concomitant]
  14. VANCOMYCIN HCL (VANCOMYCIN HYDROCHLORIDE) [Concomitant]
  15. ACETAMINOPHEN PM (DIPHENHYDRAMINE HYDROCHLORIDE, PARACETAMOL) [Concomitant]

REACTIONS (12)
  - Sepsis [None]
  - Hypotension [None]
  - Abdominal pain [None]
  - Abdominal pain upper [None]
  - Vomiting [None]
  - Diarrhoea [None]
  - Bacillus test positive [None]
  - Periportal oedema [None]
  - Gallbladder disorder [None]
  - Cholecystitis [None]
  - Leukaemic infiltration [None]
  - Platelet count decreased [None]
